FAERS Safety Report 15117356 (Version 1)
Quarter: 2018Q3

REPORT INFORMATION
  Report Type: Spontaneous
  Country: US (occurrence: US)
  Receive Date: 20180613
  Receipt Date: 20180613
  Transmission Date: 20181010
  Serious: Yes (Death)
  Sender: FDA-Public Use
  Company Number: None

PATIENT
  Age: 79 Year
  Sex: Female

DRUGS (4)
  1. PROMETHAZINE 25MG [Concomitant]
     Dates: start: 20180612
  2. HYDROMORPHONE [Suspect]
     Active Substance: HYDROMORPHONE
     Indication: PROCEDURAL PAIN
     Route: 048
     Dates: start: 20180612, end: 20180612
  3. LORAZEPAM 1MG [Concomitant]
     Active Substance: LORAZEPAM
     Dates: start: 20180612
  4. CEPHALEXIN 500MG [Concomitant]
     Active Substance: CEPHALEXIN
     Dates: start: 20180612

REACTIONS (3)
  - Cardiac arrest [None]
  - Fall [None]
  - Overdose [None]

NARRATIVE: CASE EVENT DATE: 20180612
